FAERS Safety Report 9697749 (Version 3)
Quarter: 2014Q1

REPORT INFORMATION
  Report Type: Spontaneous
  Country: US (occurrence: US)
  Receive Date: 20131120
  Receipt Date: 20140103
  Transmission Date: 20141002
  Serious: No
  Sender: FDA-Public Use
  Company Number: US-PFIZER INC-2013327852

PATIENT
  Age: 66 Year
  Sex: Male
  Weight: 86.17 kg

DRUGS (1)
  1. VIAGRA [Suspect]
     Indication: ERECTILE DYSFUNCTION
     Dosage: 50 MG, 1X/DAY (SPLITTING 100MG TABLET)
     Route: 048
     Dates: start: 20131113, end: 20131114

REACTIONS (1)
  - Drug ineffective [Unknown]
